FAERS Safety Report 5318347-3 (Version None)
Quarter: 2007Q2

REPORT INFORMATION
  Report Type: 
  Country: None (occurrence: None)
  Receive Date: 20070507
  Receipt Date: 20070427
  Transmission Date: 20071010
  Serious: Yes (Other)
  Sender: FDA-Public Use
  Company Number: JP-PFIZER INC-2007035394

PATIENT
  Age: 63 Year
  Sex: Male

DRUGS (2)
  1. XALATAN [Suspect]
     Route: 047
  2. TIMOLOL MALEATE [Concomitant]
     Route: 047

REACTIONS (2)
  - EPISTAXIS [None]
  - NASAL DISCOMFORT [None]
